FAERS Safety Report 5889253-0 (Version None)
Quarter: 2008Q3

REPORT INFORMATION
  Report Type: 
  Country: None (occurrence: None)
  Receive Date: 20080917
  Receipt Date: 20071015
  Transmission Date: 20090109
  Serious: Yes (Hospitalization)
  Sender: FDA-Public Use
  Company Number: 2006US001462

PATIENT
  Age: 40 Year
  Sex: Male

DRUGS (14)
  1. PROGRAF [Suspect]
     Indication: PROPHYLAXIS AGAINST TRANSPLANT REJECTION
     Dosage: 2 MG, BID, ORAL
     Route: 048
     Dates: start: 20050805
  2. MYCOPHENOLATE MOFETIL [Suspect]
     Indication: PROPHYLAXIS AGAINST TRANSPLANT REJECTION
     Dosage: 500 MG, BID, ORAL
     Route: 048
     Dates: start: 20050804
  3. METHYLPREDNISOLONE 16MG TAB [Suspect]
     Indication: PROPHYLAXIS AGAINST TRANSPLANT REJECTION
     Dosage: 500 MG, UNK, IV DRIP
     Route: 041
     Dates: start: 20050804
  4. PREDNISONE [Suspect]
     Indication: PROPHYLAXIS AGAINST TRANSPLANT REJECTION
     Dosage: 5 MG, UNK, ORAL
     Route: 048
     Dates: start: 20050810
  5. ZOLOFT [Concomitant]
  6. ACIPHEX [Concomitant]
  7. SEPTRA [Concomitant]
  8. VALGANCICLOVIR HCL [Concomitant]
  9. PROTONIX [Concomitant]
  10. COLACE (DOCUSATE SODIUM) [Concomitant]
  11. METOPROLOL TARTRATE [Concomitant]
  12. SYNTHROID [Concomitant]
  13. MAGNESIUM OXIDE (MAGNESIUM OXIDE) [Concomitant]
  14. FLUCONAZOLE [Concomitant]

REACTIONS (1)
  - FOCAL SEGMENTAL GLOMERULOSCLEROSIS [None]
